FAERS Safety Report 5458630-4 (Version None)
Quarter: 2007Q3

REPORT INFORMATION
  Report Type: 
  Country: None (occurrence: None)
  Receive Date: 20070919
  Receipt Date: 20070405
  Transmission Date: 20080115
  Serious: Yes (Hospitalization)
  Sender: FDA-Public Use
  Company Number: US-ASTRAZENECA-2007UW06836

PATIENT
  Age: 40 Year
  Sex: Male

DRUGS (8)
  1. SEROQUEL [Suspect]
     Route: 048
     Dates: start: 20070331
  2. ZETIA [Concomitant]
  3. ALLEGRA [Concomitant]
  4. KLONOPIN [Concomitant]
  5. VICODIN [Concomitant]
     Dosage: 7.5/750
  6. COZAAR [Concomitant]
  7. HUMALOG [Concomitant]
  8. LANTUS [Concomitant]

REACTIONS (1)
  - CONVULSION [None]
